FAERS Safety Report 10085616 (Version 1)
Quarter: 2014Q2

REPORT INFORMATION
  Report Type: Report from Study
  Country: US (occurrence: US)
  Receive Date: 20140418
  Receipt Date: 20140418
  Transmission Date: 20141212
  Serious: Yes (Other)
  Sender: FDA-Public Use
  Company Number: US-ROCHE-1380400

PATIENT
  Sex: Male

DRUGS (5)
  1. AVASTIN [Suspect]
     Indication: DIABETIC RETINOPATHY
     Route: 050
     Dates: start: 201201, end: 201205
  2. AVASTIN [Suspect]
     Indication: MACULAR OEDEMA
  3. GLIPIZIDE [Concomitant]
     Indication: DIABETES MELLITUS
     Route: 065
  4. GLIPIZIDE [Concomitant]
     Route: 065
  5. METFORMIN HYDROCHLORIDE [Concomitant]
     Indication: DIABETES MELLITUS
     Route: 065

REACTIONS (9)
  - Keratorhexis [Unknown]
  - Essential tremor [Unknown]
  - Prostatic disorder [Unknown]
  - Dysuria [Unknown]
  - Proteinuria [Unknown]
  - Bacterial infection [Unknown]
  - Urinary tract infection [Unknown]
  - Cystitis [Unknown]
  - Blood glucose fluctuation [Unknown]
